FAERS Safety Report 8265383-3 (Version None)
Quarter: 2012Q2

REPORT INFORMATION
  Report Type: 
  Country: None (occurrence: None)
  Receive Date: 20120404
  Receipt Date: 20120329
  Transmission Date: 20120825
  Serious: Yes (Death)
  Sender: FDA-Public Use
  Company Number: 2012030172

PATIENT
  Sex: Female

DRUGS (3)
  1. OXYCONTIN [Suspect]
  2. OXYCODONE HCL [Suspect]
  3. SOMA [Suspect]

REACTIONS (1)
  - RESPIRATORY ARREST [None]
